FAERS Safety Report 22170937 (Version 1)
Quarter: 2023Q2

REPORT INFORMATION
  Report Type: Spontaneous
  Country: US (occurrence: None)
  Receive Date: 20230403
  Receipt Date: 20230403
  Transmission Date: 20230721
  Serious: No
  Sender: FDA-Public Use
  Company Number: None

PATIENT
  Age: 66 Year
  Sex: Female
  Weight: 63 kg

DRUGS (1)
  1. NYSTATIN [Suspect]
     Active Substance: NYSTATIN
     Indication: Candida infection
     Dosage: FREQUENCY : 4 TIMES A DAY;?
     Dates: end: 20230115

REACTIONS (2)
  - Candida infection [None]
  - Product substitution issue [None]

NARRATIVE: CASE EVENT DATE: 20230111
